FAERS Safety Report 26116275 (Version 2)
Quarter: 2025Q4

REPORT INFORMATION
  Report Type: Spontaneous
  Country: EU (occurrence: EU)
  Receive Date: 20251203
  Receipt Date: 20251230
  Transmission Date: 20260117
  Serious: Yes (Hospitalization, Other)
  Sender: AUROBINDO
  Company Number: EU-AFSSAPS-TO2025001893

PATIENT
  Age: 70 Year
  Sex: Female

DRUGS (2)
  1. CARBOPLATIN [Suspect]
     Active Substance: CARBOPLATIN
     Indication: Squamous cell carcinoma
     Dosage: 1 DOSAGE FORM, CYCLICAL
     Dates: start: 20250106, end: 20250106
  2. NAVELBINE [Suspect]
     Active Substance: VINORELBINE TARTRATE
     Indication: Squamous cell carcinoma
     Dosage: 1 DOSAGE FORM, CYCLICAL
     Dates: start: 20250113, end: 20250113

REACTIONS (2)
  - Bone marrow failure [Not Recovered/Not Resolved]
  - Febrile bone marrow aplasia [Recovered/Resolved]

NARRATIVE: CASE EVENT DATE: 20250123
